FAERS Safety Report 10151732 (Version 1)
Quarter: 2014Q2

REPORT INFORMATION
  Report Type: Spontaneous
  Country: US (occurrence: US)
  Receive Date: 20140505
  Receipt Date: 20140505
  Transmission Date: 20141212
  Serious: Yes (Other)
  Sender: FDA-Public Use
  Company Number: US-BIOGENIDEC-2014BI040323

PATIENT
  Sex: Female

DRUGS (1)
  1. TYSABRI [Suspect]
     Indication: MULTIPLE SCLEROSIS
     Route: 042
     Dates: start: 20110706, end: 20110706

REACTIONS (4)
  - Convulsion [Unknown]
  - Injury [Unknown]
  - Osteoporosis [Not Recovered/Not Resolved]
  - Malaise [Unknown]
